FAERS Safety Report 9547293 (Version 1)
Quarter: 2013Q3

REPORT INFORMATION
  Report Type: Spontaneous
  Country: US (occurrence: None)
  Receive Date: 20130920
  Receipt Date: 20130920
  Transmission Date: 20140515
  Serious: Yes (Disabling)
  Sender: FDA-Public Use
  Company Number: ACO_38418_2013

PATIENT
  Age: 65 Year
  Sex: Female
  Weight: 54 kg

DRUGS (9)
  1. AMPYRA (DALFAMPRIDINE) TABLET, 10MG [Suspect]
     Indication: MULTIPLE SCLEROSIS
     Route: 048
     Dates: start: 20130822
  2. AMPYRA (DALFAMPRIDINE) TABLET, 10MG [Suspect]
     Indication: GAIT DISTURBANCE
     Route: 048
     Dates: start: 20130822
  3. REBIF (INTERFERON BETA-1A) [Concomitant]
  4. LIDODERM (LIDOCAINE) [Concomitant]
  5. CALCIUM +D(CALCIUM CARBONATE, COLECALCIFEROL) [Concomitant]
  6. BETHANECHOL CHLORIDE (BETHANECHOL CHLORIDE) [Concomitant]
  7. STOOL SOFTENER (DOCUSATE SODIUM) [Concomitant]
  8. DIAZEPAM (DIAZEPAM) [Concomitant]
  9. GABAPENTIN (GABAPENTIN) [Concomitant]

REACTIONS (6)
  - Back pain [None]
  - Abasia [None]
  - Abdominal distension [None]
  - Blood pressure decreased [None]
  - Headache [None]
  - Disability [None]
